FAERS Safety Report 7178077-2 (Version None)
Quarter: 2010Q4

REPORT INFORMATION
  Report Type: 
  Country: None (occurrence: None)
  Receive Date: 20101220
  Receipt Date: 20101216
  Transmission Date: 20110411
  Serious: Yes (Hospitalization)
  Sender: FDA-Public Use
  Company Number: A0888660A

PATIENT
  Age: 95 Year
  Sex: Male

DRUGS (3)
  1. ADVAIR [Suspect]
     Indication: CHRONIC OBSTRUCTIVE PULMONARY DISEASE
     Route: 055
     Dates: end: 20101021
  2. HEART MEDICATION [Concomitant]
  3. CONCURRENT MEDICATIONS [Concomitant]

REACTIONS (8)
  - DYSPHAGIA [None]
  - DYSPHONIA [None]
  - EAR PAIN [None]
  - HEADACHE [None]
  - ILL-DEFINED DISORDER [None]
  - OROPHARYNGEAL PAIN [None]
  - PRODUCT QUALITY ISSUE [None]
  - SINUSITIS [None]
